FAERS Safety Report 6374706-1 (Version None)
Quarter: 2009Q3

REPORT INFORMATION
  Report Type: 
  Country: None (occurrence: None)
  Receive Date: 20090924
  Receipt Date: 20090918
  Transmission Date: 20100115
  Serious: Yes (Other)
  Sender: FDA-Public Use
  Company Number: US-PFIZER INC-2009259529

PATIENT
  Sex: Male
  Weight: 80.726 kg

DRUGS (1)
  1. LIPITOR [Suspect]
     Indication: BLOOD CHOLESTEROL INCREASED
     Dosage: UNK
     Dates: start: 19940101, end: 20020101

REACTIONS (4)
  - ASTHENIA [None]
  - HEARING IMPAIRED [None]
  - MUSCLE DISORDER [None]
  - MUSCLE INJURY [None]
